FAERS Safety Report 5627029-X (Version None)
Quarter: 2008Q1

REPORT INFORMATION
  Report Type: 
  Country: None (occurrence: None)
  Receive Date: 20080117
  Receipt Date: 20070102
  Transmission Date: 20080703
  Serious: Yes (Hospitalization)
  Sender: FDA-Public Use
  Company Number: E2020-00819-SPO-US

PATIENT
  Age: 82 Year
  Sex: Male

DRUGS (5)
  1. ARICEPT [Suspect]
     Indication: DEMENTIA
     Dosage: ORAL
     Route: 048
     Dates: start: 20040101
  2. NAMENDA [Suspect]
     Indication: DEMENTIA
     Dosage: 5 MG, 1 IN 1 D, ORAL ; 10 MG, 2 IN 1 D, ORAL ; 15 MG, 1 IN 1 D, ORAL ; 20 MG, 2 IN 1 D, ORAL
     Route: 048
     Dates: start: 20040101, end: 20040101
  3. NAMENDA [Suspect]
     Indication: DEMENTIA
     Dosage: 5 MG, 1 IN 1 D, ORAL ; 10 MG, 2 IN 1 D, ORAL ; 15 MG, 1 IN 1 D, ORAL ; 20 MG, 2 IN 1 D, ORAL
     Route: 048
     Dates: start: 20040101, end: 20040101
  4. NAMENDA [Suspect]
     Indication: DEMENTIA
     Dosage: 5 MG, 1 IN 1 D, ORAL ; 10 MG, 2 IN 1 D, ORAL ; 15 MG, 1 IN 1 D, ORAL ; 20 MG, 2 IN 1 D, ORAL
     Route: 048
     Dates: start: 20040101, end: 20040101
  5. NAMENDA [Suspect]
     Indication: DEMENTIA
     Dosage: 5 MG, 1 IN 1 D, ORAL ; 10 MG, 2 IN 1 D, ORAL ; 15 MG, 1 IN 1 D, ORAL ; 20 MG, 2 IN 1 D, ORAL
     Route: 048
     Dates: start: 20040101

REACTIONS (2)
  - ELECTROENCEPHALOGRAM ABNORMAL [None]
  - SYNCOPE [None]
